FAERS Safety Report 14350614 (Version 1)
Quarter: 2018Q1

REPORT INFORMATION
  Report Type: Spontaneous
  Country: US (occurrence: US)
  Receive Date: 20180104
  Receipt Date: 20180104
  Transmission Date: 20180509
  Serious: No
  Sender: FDA-Public Use
  Company Number: US-ALLERGAN-1759043US

PATIENT
  Age: 47 Year
  Sex: Male

DRUGS (2)
  1. VRAYLAR [Suspect]
     Active Substance: CARIPRAZINE
     Indication: PRODUCT USED FOR UNKNOWN INDICATION
     Dosage: 1.5 MG, UNK
     Route: 065
     Dates: start: 201607
  2. VRAYLAR [Suspect]
     Active Substance: CARIPRAZINE
     Dosage: UNK, Q WEEK
     Route: 065
     Dates: end: 201706

REACTIONS (2)
  - Off label use [Unknown]
  - Akathisia [Unknown]

NARRATIVE: CASE EVENT DATE: 201607
